FAERS Safety Report 8964336 (Version 1)
Quarter: 2012Q4

REPORT INFORMATION
  Report Type: 
  Country: US (occurrence: US)
  Receive Date: 20121214
  Receipt Date: 20121214
  Transmission Date: 20130627
  Serious: No
  Sender: FDA-Public Use
  Company Number: US-GLAXOSMITHKLINE-A0971565A

PATIENT
  Age: 64 Year
  Sex: Male

DRUGS (7)
  1. AVODART [Suspect]
     Indication: BENIGN PROSTATIC HYPERPLASIA
     Dosage: .5MG Per day
     Route: 048
     Dates: start: 201103
  2. OMEGA 3 FISH OIL [Concomitant]
  3. VITAMIN B [Concomitant]
  4. LUTEIN [Concomitant]
  5. VITAMIN C [Concomitant]
  6. SAW PALMETTO [Concomitant]
  7. MULTIVITAMIN [Concomitant]

REACTIONS (1)
  - Tinnitus [Not Recovered/Not Resolved]
